APPROVED DRUG PRODUCT: ALPHADROL
Active Ingredient: FLUPREDNISOLONE
Strength: 1.5MG
Dosage Form/Route: TABLET;ORAL
Application: N012259 | Product #002
Applicant: PHARMACIA AND UPJOHN CO
Approved: Approved Prior to Jan 1, 1982 | RLD: No | RS: No | Type: DISCN